FAERS Safety Report 4282164-6 (Version None)
Quarter: 2004Q1

REPORT INFORMATION
  Report Type: 
  Country: None (occurrence: None)
  Receive Date: 20040112
  Receipt Date: 20031121
  Transmission Date: 20041129
  Serious: No
  Sender: FDA-Public Use
  Company Number: PHEH2003US10779

PATIENT
  Age: 50 Year
  Sex: Female

DRUGS (1)
  1. ELIDEL [Suspect]
     Indication: SKIN IRRITATION
     Dosage: PRN, TOPICAL
     Route: 061
     Dates: end: 20031119

REACTIONS (5)
  - CONDITION AGGRAVATED [None]
  - ERYTHEMA [None]
  - LIP DISORDER [None]
  - LYMPHADENOPATHY [None]
  - RASH PRURITIC [None]
